FAERS Safety Report 8540892-8 (Version None)
Quarter: 2012Q3

REPORT INFORMATION
  Report Type: 
  Country: None (occurrence: None)
  Receive Date: 20120726
  Receipt Date: 20120723
  Transmission Date: 20120928
  Serious: Yes (Other)
  Sender: FDA-Public Use
  Company Number: US-PFIZER INC-2012177001

PATIENT
  Sex: Male
  Weight: 90.703 kg

DRUGS (1)
  1. VIAGRA [Suspect]
     Indication: SEXUAL DYSFUNCTION
     Dosage: UNK, 2X/DAY
     Dates: start: 20110101

REACTIONS (5)
  - OFF LABEL USE [None]
  - BURNING SENSATION [None]
  - LENTIVIRUS TEST POSITIVE [None]
  - DRUG INEFFECTIVE FOR UNAPPROVED INDICATION [None]
  - PAINFUL ERECTION [None]
